FAERS Safety Report 13108511 (Version 1)
Quarter: 2017Q1

REPORT INFORMATION
  Report Type: Spontaneous
  Country: US (occurrence: US)
  Receive Date: 20170111
  Receipt Date: 20170111
  Transmission Date: 20170428
  Serious: Yes (Other)
  Sender: FDA-Public Use
  Company Number: None

PATIENT
  Age: 59 Year
  Weight: 85.5 kg

DRUGS (11)
  1. ESTRADIOL. [Concomitant]
     Active Substance: ESTRADIOL
  2. BUPROPION. [Concomitant]
     Active Substance: BUPROPION
  3. VITAMIN B12 [Concomitant]
     Active Substance: CYANOCOBALAMIN
  4. FLUTICASONE. [Concomitant]
     Active Substance: FLUTICASONE
  5. MONTELUKSAT [Concomitant]
  6. FLAXSEED [Concomitant]
     Active Substance: FLAX SEED
  7. CYCLOSPORINE. [Concomitant]
     Active Substance: CYCLOSPORINE
  8. OMNICEF [Suspect]
     Active Substance: CEFDINIR
     Indication: SINUSITIS
     Dosage: ?          QUANTITY:20 TABLET(S);?
     Route: 048
     Dates: start: 20161214, end: 20161228
  9. ALLBUTEROL [Concomitant]
  10. FISH OIL [Concomitant]
     Active Substance: FISH OIL
  11. VITAMIN D [Concomitant]
     Active Substance: CHOLECALCIFEROL

REACTIONS (5)
  - Impaired driving ability [None]
  - Dizziness [None]
  - Headache [None]
  - Altered visual depth perception [None]
  - Blood pressure increased [None]

NARRATIVE: CASE EVENT DATE: 20161229
